FAERS Safety Report 8876039 (Version 1)
Quarter: 2012Q4

REPORT INFORMATION
  Report Type: 
  Country: US (occurrence: US)
  Receive Date: 20121023
  Receipt Date: 20121023
  Transmission Date: 20130627
  Serious: No
  Sender: FDA-Public Use
  Company Number: US-VERTEX PHARMACEUTICAL INC.-2012-023253

PATIENT
  Sex: Male
  Weight: 74 kg

DRUGS (5)
  1. VX-950 [Suspect]
     Indication: HEPATITIS C
     Dosage: UNK
     Route: 048
  2. PEGASYS [Concomitant]
     Indication: HEPATITIS C
     Dosage: 180 ?g, weekly
     Route: 058
     Dates: start: 2012
  3. RIBAPAK [Concomitant]
     Indication: HEPATITIS C
     Dosage: 600/600
     Dates: start: 2012
  4. MIRTAZAPINE [Concomitant]
     Dosage: 15 mg, qd
  5. TEMAZEPAM [Concomitant]
     Dosage: 15 mg, qd

REACTIONS (1)
  - Depression [Unknown]
